FAERS Safety Report 5032179-5 (Version None)
Quarter: 2006Q2

REPORT INFORMATION
  Report Type: 
  Country: None (occurrence: None)
  Receive Date: 20060619
  Receipt Date: 20060608
  Transmission Date: 20061013
  Serious: Yes (Other)
  Sender: FDA-Public Use
  Company Number: FRWYE713109JUN06

PATIENT
  Age: 54 Year
  Sex: Male

DRUGS (6)
  1. NEORAL [Suspect]
     Indication: PROPHYLAXIS AGAINST TRANSPLANT REJECTION
     Dosage: 400 MG 1X PER 1 DAY ORAL
     Route: 048
     Dates: start: 20030430
  2. CELLCEPT [Concomitant]
  3. CORTAN [Concomitant]
  4. PREVISCAN (FLUINDIONE) [Concomitant]
  5. SOTALOL HCL [Concomitant]
  6. AMLODIPINE [Concomitant]

REACTIONS (2)
  - APHTHOUS STOMATITIS [None]
  - NEUTROPENIA [None]
